FAERS Safety Report 7700049-7 (Version None)
Quarter: 2011Q3

REPORT INFORMATION
  Report Type: 
  Country: None (occurrence: None)
  Receive Date: 20110822
  Receipt Date: 20110809
  Transmission Date: 20111222
  Serious: Yes (Hospitalization)
  Sender: FDA-Public Use
  Company Number: US-ELI_LILLY_AND_COMPANY-US201108003638

PATIENT
  Sex: Female

DRUGS (3)
  1. SEROQUEL [Concomitant]
     Dosage: UNK
  2. PROZAC [Suspect]
     Indication: DEPRESSION
     Dosage: 10 MG, QD
     Dates: end: 20110308
  3. PROZAC [Suspect]
     Dosage: 20 MG, QD
     Dates: start: 20110309

REACTIONS (2)
  - PRE-ECLAMPSIA [None]
  - MATERNAL EXPOSURE DURING PREGNANCY [None]
